FAERS Safety Report 8722845 (Version 7)
Quarter: 2013Q4

REPORT INFORMATION
  Report Type: Spontaneous
  Country: US (occurrence: US)
  Receive Date: 20120814
  Receipt Date: 20131016
  Transmission Date: 20140711
  Serious: Yes (Hospitalization, Other)
  Sender: FDA-Public Use
  Company Number: US-ASTRAZENECA-2012SE55341

PATIENT
  Age: 52 Year
  Sex: Male
  Weight: 67.6 kg

DRUGS (4)
  1. NEXIUM [Suspect]
     Indication: GASTROOESOPHAGEAL REFLUX DISEASE
     Route: 048
     Dates: start: 2010
  2. NEXIUM [Suspect]
     Indication: GASTROOESOPHAGEAL REFLUX DISEASE
     Dosage: GENERIC
     Route: 048
  3. NEXIUM [Suspect]
     Indication: GASTROOESOPHAGEAL REFLUX DISEASE
     Route: 048
  4. OMEPRAZOLE [Suspect]
     Route: 048

REACTIONS (24)
  - Dehydration [Unknown]
  - Gastric haemorrhage [Unknown]
  - Haematemesis [Unknown]
  - Aphagia [Unknown]
  - Ulcer [Unknown]
  - Back disorder [Unknown]
  - Regurgitation [Unknown]
  - Gastric disorder [Unknown]
  - Dyspepsia [Unknown]
  - Gastric ulcer [Unknown]
  - Adverse event [Unknown]
  - Abdominal distension [Unknown]
  - Oesophageal food impaction [Unknown]
  - Nervous system disorder [Unknown]
  - Sleep disorder due to general medical condition, insomnia type [Unknown]
  - Eructation [Unknown]
  - Vomiting [Unknown]
  - Abdominal pain upper [Unknown]
  - Flatulence [Unknown]
  - Retching [Unknown]
  - Abdominal pain upper [Unknown]
  - Intentional drug misuse [Unknown]
  - Drug dose omission [Unknown]
  - Drug ineffective [Unknown]
